FAERS Safety Report 6713525-0 (Version None)
Quarter: 2010Q2

REPORT INFORMATION
  Report Type: 
  Country: None (occurrence: None)
  Receive Date: 20100504
  Receipt Date: 20100422
  Transmission Date: 20101027
  Serious: Yes (Other)
  Sender: FDA-Public Use
  Company Number: 1000013475

PATIENT
  Age: 57 Year
  Sex: Female
  Weight: 62 kg

DRUGS (1)
  1. ESCITALOPRAM [Suspect]
     Dosage: 20 MG (20 MG, 1 IN 1 D), ORAL, 5 MG (5MG;1 IN 1 D), 10 (10 MG, 1 IN 1 D), 15 MG, 1 IN 1D
     Route: 048

REACTIONS (7)
  - AGITATION [None]
  - DECREASED APPETITE [None]
  - FEELING ABNORMAL [None]
  - FEELING OF DESPAIR [None]
  - INSOMNIA [None]
  - MENTAL DISORDER [None]
  - SUICIDAL IDEATION [None]
